FAERS Safety Report 16418445 (Version 1)
Quarter: 2019Q2

REPORT INFORMATION
  Report Type: Spontaneous
  Country: JP (occurrence: JP)
  Receive Date: 20190612
  Receipt Date: 20190612
  Transmission Date: 20190711
  Serious: Yes (Hospitalization)
  Sender: FDA-Public Use
  Company Number: JP-AMGEN-JPNSP2019064777

PATIENT
  Age: 54 Year
  Sex: Male
  Weight: 51.2 kg

DRUGS (10)
  1. REVLIMID [Suspect]
     Active Substance: LENALIDOMIDE
     Indication: PLASMA CELL MYELOMA
     Dosage: 10 MILLIGRAM
     Route: 048
     Dates: start: 20190311, end: 20190318
  2. FEBURIC [Concomitant]
     Active Substance: FEBUXOSTAT
     Indication: HYPERURICAEMIA
     Dosage: 20 MG, EVERYDAY
     Route: 048
     Dates: start: 20190115
  3. TAKECAB [Concomitant]
     Active Substance: VONOPRAZAN FUMURATE
     Indication: DECREASED APPETITE
     Dosage: 20 MG, EVERYDAY
     Route: 048
     Dates: start: 20190311
  4. REVLIMID [Suspect]
     Active Substance: LENALIDOMIDE
     Dosage: 5 MILLIGRAM
     Route: 048
     Dates: start: 20190320, end: 20190325
  5. LENADEX [Concomitant]
     Active Substance: DEXAMETHASONE ACETATE
     Indication: PLASMA CELL MYELOMA
     Dosage: 40 MG
     Route: 048
     Dates: start: 20190311, end: 20190325
  6. KYPROLIS [Suspect]
     Active Substance: CARFILZOMIB
     Indication: PLASMA CELL MYELOMA
     Dosage: 34 MILLIGRAM
     Route: 041
     Dates: start: 20190311, end: 20190312
  7. KYPROLIS [Suspect]
     Active Substance: CARFILZOMIB
     Dosage: 46 MILLIGRAM
     Route: 041
     Dates: start: 20190318, end: 20190326
  8. FUNGIZONE [Concomitant]
     Active Substance: AMPHOTERICIN B
     Indication: ORAL CANDIDIASIS
     Dosage: 1 MILLILITER, Q8H
     Route: 048
     Dates: start: 20190311
  9. RIKKUNSHITO [ATRACTYLODES LANCEA RHIZOME;CITRUS RETICULATA PEEL;GLYCYR [Concomitant]
     Indication: DECREASED APPETITE
     Dosage: 2.5 GRAM, Q8H
     Route: 048
     Dates: start: 20190315
  10. CALONAL [Concomitant]
     Active Substance: ACETAMINOPHEN
     Indication: PAIN
     Dosage: 400 MILLIGRAM, Q12H
     Route: 048
     Dates: start: 20190314

REACTIONS (1)
  - Varicella [Recovered/Resolved]

NARRATIVE: CASE EVENT DATE: 20190329
